FAERS Safety Report 6186981-7 (Version None)
Quarter: 2009Q2

REPORT INFORMATION
  Report Type: 
  Country: None (occurrence: None)
  Receive Date: 20090512
  Receipt Date: 20090428
  Transmission Date: 20091009
  Serious: Yes (Hospitalization)
  Sender: FDA-Public Use
  Company Number: JP-BAYER-200911355BYL

PATIENT
  Age: 41 Year
  Sex: Male
  Weight: 58 kg

DRUGS (7)
  1. FLUDARA [Suspect]
     Indication: ADULT T-CELL LYMPHOMA/LEUKAEMIA
     Dosage: AS USED: 30 MG/M2  UNIT DOSE: 50 MG
     Route: 042
     Dates: start: 20081018, end: 20081023
  2. ALKERAN [Concomitant]
     Indication: ADULT T-CELL LYMPHOMA/LEUKAEMIA
     Dosage: AS USED: 70 MG/M2
     Route: 042
     Dates: start: 20081021, end: 20081022
  3. METHOTREXATE [Concomitant]
     Dosage: AS USED: 17 MG
     Route: 042
     Dates: start: 20081026, end: 20081026
  4. METHOTREXATE [Concomitant]
     Dosage: AS USED: 12 MG
     Route: 042
     Dates: start: 20081028, end: 20081028
  5. METHOTREXATE [Concomitant]
     Dosage: AS USED: 12 MG
     Route: 042
     Dates: start: 20081031, end: 20081031
  6. CONCENTRATED RED CELLS [Concomitant]
     Indication: PACKED RED BLOOD CELL TRANSFUSION
     Route: 042
     Dates: start: 20081026, end: 20081127
  7. PLATELETS [Concomitant]
     Indication: PLATELET TRANSFUSION
     Route: 042
     Dates: start: 20081027, end: 20081116

REACTIONS (1)
  - ACUTE GRAFT VERSUS HOST DISEASE [None]
